FAERS Safety Report 10423803 (Version 1)
Quarter: 2014Q3

REPORT INFORMATION
  Report Type: Spontaneous
  Country: MX (occurrence: MX)
  Receive Date: 20140902
  Receipt Date: 20140902
  Transmission Date: 20150326
  Serious: Yes (Other)
  Sender: FDA-Public Use
  Company Number: MX-009507513-1409MEX000288

PATIENT
  Sex: Female

DRUGS (1)
  1. IMPLANON [Suspect]
     Active Substance: ETONOGESTREL
     Indication: CONTRACEPTION
     Dosage: TRIENIAL FREQUENCY; TOTAL DAILY DOSE: 60-70 MICROGRAM/DAY
     Route: 059

REACTIONS (3)
  - Blighted ovum [Recovered/Resolved]
  - Uterine dilation and curettage [Recovered/Resolved]
  - Unintended pregnancy [Recovered/Resolved]
